FAERS Safety Report 8857403 (Version 1)
Quarter: 2012Q4

REPORT INFORMATION
  Report Type: 
  Country: US (occurrence: US)
  Receive Date: 20121024
  Receipt Date: 20121024
  Transmission Date: 20130627
  Serious: No
  Sender: FDA-Public Use
  Company Number: US-BAYER-2012-111132

PATIENT
  Age: 88 Year
  Sex: Female
  Weight: 59 kg

DRUGS (14)
  1. ALEVE CAPLET/TABLET,MIDOL EXTENDED RELIEF CAPLET [Suspect]
     Dosage: 2 DF, BID
     Route: 048
     Dates: start: 2011
  2. CENTRUM SILVER [Concomitant]
  3. ASPIRIN [Concomitant]
  4. HYDROCHLOROTHIAZIDE [Concomitant]
  5. CALCIUM+B [Concomitant]
  6. LOVASTATIN [Concomitant]
  7. METOPROLOL [Concomitant]
  8. FOSINOPRIL [Concomitant]
  9. CLONIDINE [Concomitant]
  10. FISH OIL [Concomitant]
  11. ALENDRONATE SODIUM [Concomitant]
  12. METFORMIN [Concomitant]
  13. GABAPENTIN [Concomitant]
  14. TRAMADOL [Concomitant]

REACTIONS (1)
  - No adverse event [None]
